FAERS Safety Report 15059375 (Version 1)
Quarter: 2018Q2

REPORT INFORMATION
  Report Type: Spontaneous
  Country: US (occurrence: US)
  Receive Date: 20180605
  Receipt Date: 20180605
  Transmission Date: 20180711
  Serious: No
  Sender: FDA-Public Use
  Company Number: None

PATIENT
  Age: 56 Year
  Sex: Female

DRUGS (1)
  1. MYCOPHENOLATE TAB 500MG GENENTECH [Suspect]
     Active Substance: MYCOPHENOLATE SODIUM

REACTIONS (1)
  - Off label use [None]

NARRATIVE: CASE EVENT DATE: 20180605
